FAERS Safety Report 24045815 (Version 1)
Quarter: 2024Q3

REPORT INFORMATION
  Report Type: Spontaneous
  Country: US (occurrence: None)
  Receive Date: 20240702
  Receipt Date: 20240702
  Transmission Date: 20241017
  Serious: Yes (Hospitalization)
  Sender: Public
  Company Number: None

PATIENT
  Age: 37 Year
  Sex: Female
  Weight: 80.1 kg

DRUGS (3)
  1. GAMUNEX-C [Suspect]
     Active Substance: HUMAN IMMUNOGLOBULIN G
     Indication: Connective tissue disorder
     Dosage: OTHER FREQUENCY : EVERY TWO WEEKS;?
     Route: 042
     Dates: start: 20231220, end: 20240627
  2. Loratadine 10mg by mouth [Concomitant]
  3. Acetaminophen 975 MG by mouth [Concomitant]

REACTIONS (7)
  - Chest pain [None]
  - Back pain [None]
  - Pain in extremity [None]
  - Nausea [None]
  - Feeling cold [None]
  - Pulmonary embolism [None]
  - Therapy cessation [None]

NARRATIVE: CASE EVENT DATE: 20240626
